FAERS Safety Report 13239664 (Version 1)
Quarter: 2017Q1

REPORT INFORMATION
  Report Type: Spontaneous
  Country: US (occurrence: US)
  Receive Date: 20170216
  Receipt Date: 20170216
  Transmission Date: 20170428
  Serious: No
  Sender: FDA-Public Use
  Company Number: US-RELYPSA-RLY2016003516

PATIENT
  Age: 44 Year
  Sex: Male

DRUGS (5)
  1. VELTASSA [Suspect]
     Active Substance: PATIROMER
     Indication: HYPERKALAEMIA
     Dosage: 8.4 G, QD
     Route: 048
     Dates: start: 201608
  2. LOSARTAN. [Concomitant]
     Active Substance: LOSARTAN
  3. GLIPIZIDE. [Concomitant]
     Active Substance: GLIPIZIDE
  4. VICTOZA [Concomitant]
     Active Substance: LIRAGLUTIDE
  5. CLONIDINE. [Concomitant]
     Active Substance: CLONIDINE

REACTIONS (1)
  - Knee operation [Unknown]

NARRATIVE: CASE EVENT DATE: 201610
